FAERS Safety Report 7630100-4 (Version None)
Quarter: 2011Q3

REPORT INFORMATION
  Report Type: 
  Country: None (occurrence: None)
  Receive Date: 20110722
  Receipt Date: 20110707
  Transmission Date: 20111222
  Serious: Yes (Hospitalization)
  Sender: FDA-Public Use
  Company Number: IT-BAYER-2011-059195

PATIENT
  Sex: Male

DRUGS (1)
  1. KETOPROFEN [Suspect]

REACTIONS (2)
  - HYPERTRANSAMINASAEMIA [None]
  - JAUNDICE [None]
